FAERS Safety Report 6186945-3 (Version None)
Quarter: 2009Q2

REPORT INFORMATION
  Report Type: 
  Country: None (occurrence: None)
  Receive Date: 20090508
  Receipt Date: 20090508
  Transmission Date: 20091009
  Serious: Yes (Life-Threatening)
  Sender: FDA-Public Use
  Company Number: None

PATIENT
  Age: 58 Month
  Sex: Female
  Weight: 18.5975 kg

DRUGS (2)
  1. DELSYM [Suspect]
     Indication: COUGH
     Dosage: 1 TEA SPOON 12 HOURS PO; 1 TEA SPOON 12 HOURS PO
     Route: 048
     Dates: start: 20090503, end: 20090503
  2. DELSYM [Suspect]
     Indication: COUGH
     Dosage: 1 TEA SPOON 12 HOURS PO; 1 TEA SPOON 12 HOURS PO
     Route: 048
     Dates: start: 20090504, end: 20090504

REACTIONS (3)
  - MUSCULOSKELETAL STIFFNESS [None]
  - PUPIL FIXED [None]
  - UNRESPONSIVE TO STIMULI [None]
